FAERS Safety Report 22097766 (Version 1)
Quarter: 2023Q1

REPORT INFORMATION
  Report Type: Spontaneous
  Country: US (occurrence: None)
  Receive Date: 20230314
  Receipt Date: 20230314
  Transmission Date: 20230418
  Serious: Yes (Other)
  Sender: FDA-Public Use
  Company Number: None

PATIENT
  Age: 46 Year
  Sex: Female
  Weight: 45.9 kg

DRUGS (3)
  1. AJOVY [Suspect]
     Active Substance: FREMANEZUMAB-VFRM
     Indication: Migraine
     Dates: start: 20220601, end: 20220808
  2. Wellbutrin 150 mg extended release 24h. LATANOPROST 0.005% EYE DROPS [Concomitant]
  3. VITAMIN D3 [Concomitant]
     Active Substance: CHOLECALCIFEROL

REACTIONS (4)
  - Visual impairment [None]
  - Eye pain [None]
  - Optic nerve injury [None]
  - Visual field defect [None]

NARRATIVE: CASE EVENT DATE: 20220615
